FAERS Safety Report 20930923 (Version 1)
Quarter: 2022Q2

REPORT INFORMATION
  Report Type: Spontaneous
  Country: US (occurrence: US)
  Receive Date: 20220608
  Receipt Date: 20220608
  Transmission Date: 20220720
  Serious: Yes (Hospitalization)
  Sender: FDA-Public Use
  Company Number: US-MYLANLABS-2022M1042769

PATIENT
  Age: 62 Year
  Sex: Male

DRUGS (9)
  1. METHADONE [Suspect]
     Active Substance: METHADONE HYDROCHLORIDE
     Indication: Drug use disorder
     Dosage: 80 MILLIGRAM, QD
  2. BUPRENORPHINE [Suspect]
     Active Substance: BUPRENORPHINE
     Indication: Drug use disorder
     Dosage: 0.1 MILLIGRAM, ON INDUCTION DAY 1, AT 6 PM
     Route: 042
  3. BUPRENORPHINE [Suspect]
     Active Substance: BUPRENORPHINE
     Dosage: 0.2 MILLIGRAM, ON INDUCTION DAY 1, AT 12 MINDNIGHT
     Route: 042
  4. BUPRENORPHINE [Suspect]
     Active Substance: BUPRENORPHINE
     Dosage: 0.3 MILLIGRAM, Q6H, ON INDUCTION DAY 2- AT 6AM, 12 NOON, 6 PM AND 12 MIDNIGHT
     Route: 042
  5. BUPRENORPHINE [Suspect]
     Active Substance: BUPRENORPHINE
     Dosage: 0.3 MILLIGRAM, Q6H, ON INDUCTION DAY 3- AT 6AM, 12 NOON AND 6 PM
     Route: 042
  6. BUPRENORPHINE [Suspect]
     Active Substance: BUPRENORPHINE
     Dosage: 0.4 MILLIGRAM, Q6H, ON INDUCTION DAY 3- AT 12 MIDNIGHT
     Route: 042
  7. BUPRENORPHINE [Suspect]
     Active Substance: BUPRENORPHINE
     Dosage: 0.4 MILLIGRAM, ON INDUCTION DAY 4-AT 6AM, 12 NOON AND 6 PM
     Route: 042
  8. BUPRENORPHINE [Suspect]
     Active Substance: BUPRENORPHINE
     Dosage: 0.5 MILLIGRAM, ON INDUCTION DAY 4-AT 12 MIDNIGHT
     Route: 042
  9. BUPRENORPHINE [Suspect]
     Active Substance: BUPRENORPHINE
     Dosage: 0.5 MILLIGRAM, ON INDUCTION DAY 5- AT 6AM AND 12 NOON
     Route: 042

REACTIONS (3)
  - Acute respiratory failure [Recovered/Resolved]
  - Withdrawal syndrome [Recovered/Resolved]
  - Off label use [Unknown]
